FAERS Safety Report 10921256 (Version 1)
Quarter: 2015Q1

REPORT INFORMATION
  Report Type: Spontaneous
  Country: ES (occurrence: ES)
  Receive Date: 20150317
  Receipt Date: 20150317
  Transmission Date: 20150721
  Serious: Yes (Other)
  Sender: FDA-Public Use
  Company Number: ES-SUN PHARMACEUTICAL INDUSTRIES EUROPE B.V-12SUNOX17P

PATIENT
  Age: 62 Year
  Sex: Female

DRUGS (3)
  1. CAPECITABINE. [Concomitant]
     Active Substance: CAPECITABINE
     Indication: ADENOCARCINOMA OF COLON
     Dosage: 1250 MG/M^2 TWICE PER DAY ON DAYS 1 TO 14 OF CYCLE; CYCLE INTERVAL 3 WEEKS.
  2. BEVACIZUMAB [Concomitant]
     Active Substance: BEVACIZUMAB
     Indication: ADENOCARCINOMA OF COLON
  3. OXALIPLATIN 5 MG/ML, CONCENTRATE FOR SOLUTION FOR INFUSION [Suspect]
     Active Substance: OXALIPLATIN
     Indication: ADENOCARCINOMA OF COLON
     Route: 042

REACTIONS (13)
  - Paraesthesia [Recovered/Resolved]
  - Dysstasia [None]
  - Abasia [Recovered/Resolved]
  - Muscle rigidity [Recovered/Resolved]
  - Muscle spasms [Recovered/Resolved]
  - Pain in extremity [None]
  - Neurotoxicity [Recovered/Resolved]
  - Pain in jaw [Recovered/Resolved]
  - Muscular weakness [Recovered/Resolved]
  - Muscle contracture [Recovered/Resolved]
  - Anaesthesia [Recovered/Resolved]
  - Dysphonia [Recovered/Resolved]
  - Muscular weakness [None]
